FAERS Safety Report 14335450 (Version 1)
Quarter: 2017Q4

REPORT INFORMATION
  Report Type: Report from Study
  Country: CN (occurrence: CN)
  Receive Date: 20171229
  Receipt Date: 20171229
  Transmission Date: 20180321
  Serious: Yes (Other)
  Sender: FDA-Public Use
  Company Number: CN-ROCHE-2043386

PATIENT

DRUGS (4)
  1. PEGINTERFERON ALFA-2B [Suspect]
     Active Substance: PEGINTERFERON ALFA-2B
     Indication: CHRONIC HEPATITIS C
     Route: 065
  2. LEUCOGEN (CHINA) [Concomitant]
     Route: 065
  3. PEG-INTERFERON ALFA 2A [Suspect]
     Active Substance: PEGINTERFERON ALFA-2A
     Indication: CHRONIC HEPATITIS C
     Route: 065
  4. RIBAVIRIN. [Suspect]
     Active Substance: RIBAVIRIN
     Indication: CHRONIC HEPATITIS C
     Dosage: DAILY DOSE:600-1000 MG
     Route: 065

REACTIONS (14)
  - Fatigue [Unknown]
  - Thyroid disorder [Unknown]
  - Rash [Unknown]
  - Neutropenia [Unknown]
  - Thrombocytopenia [Unknown]
  - Pyrexia [Unknown]
  - Decreased appetite [Unknown]
  - Anaemia [Unknown]
  - Jaundice [Unknown]
  - Hepatocellular carcinoma [Unknown]
  - Lung infection [Unknown]
  - Alanine aminotransferase increased [Unknown]
  - Gastric cancer [Unknown]
  - Depression [Unknown]
